FAERS Safety Report 4982674-X (Version None)
Quarter: 2006Q2

REPORT INFORMATION
  Report Type: 
  Country: None (occurrence: None)
  Receive Date: 20060425
  Receipt Date: 20050414
  Transmission Date: 20061013
  Serious: Yes (Hospitalization, Disabling)
  Sender: FDA-Public Use
  Company Number: US-MERCK-0504USA02469

PATIENT
  Age: 54 Year
  Sex: Male
  Weight: 134 kg

DRUGS (4)
  1. VIOXX [Suspect]
     Indication: ARTHRITIS
     Route: 048
     Dates: start: 20010419, end: 20030830
  2. VIOXX [Suspect]
     Route: 048
     Dates: start: 20001205
  3. VIOXX [Suspect]
     Indication: PAIN
     Route: 048
     Dates: start: 20010419, end: 20030830
  4. VIOXX [Suspect]
     Route: 048
     Dates: start: 20001205

REACTIONS (11)
  - CARPAL TUNNEL SYNDROME [None]
  - CEREBROVASCULAR ACCIDENT [None]
  - FAECAL INCONTINENCE [None]
  - FLATULENCE [None]
  - FURUNCLE [None]
  - INFARCTION [None]
  - NEPHROLITHIASIS [None]
  - NERVE COMPRESSION [None]
  - OEDEMA PERIPHERAL [None]
  - THERAPY NON-RESPONDER [None]
  - TRANSIENT ISCHAEMIC ATTACK [None]
